FAERS Safety Report 19025279 (Version 6)
Quarter: 2022Q3

REPORT INFORMATION
  Report Type: Report from Study
  Country: GB (occurrence: GB)
  Receive Date: 20210318
  Receipt Date: 20220829
  Transmission Date: 20221026
  Serious: Yes (Hospitalization, Other)
  Sender: FDA-Public Use
  Company Number: GB-TAKEDA-GB201600815

PATIENT
  Age: 10 Year
  Sex: Male

DRUGS (60)
  1. IDURSULFASE [Suspect]
     Active Substance: IDURSULFASE
     Indication: Mucopolysaccharidosis II
     Dosage: 0.5 MILLIGRAM/KILOGRAM, 1/WEEK
     Route: 042
     Dates: start: 20070405
  2. IDURSULFASE [Suspect]
     Active Substance: IDURSULFASE
     Dosage: 0.47 MILLIGRAM/KILOGRAM, 1/WEEK
     Route: 042
     Dates: start: 20070524, end: 200705
  3. IDURSULFASE [Suspect]
     Active Substance: IDURSULFASE
     Dosage: 0.5 MILLIGRAM/KILOGRAM, 1/WEEK
     Route: 042
     Dates: start: 20070531
  4. IDURSULFASE [Suspect]
     Active Substance: IDURSULFASE
     Dosage: 0.48 MILLIGRAM/KILOGRAM, 1/WEEK
     Route: 042
     Dates: start: 20080707
  5. IDURSULFASE [Suspect]
     Active Substance: IDURSULFASE
     Dosage: 0.41 MILLIGRAM/KILOGRAM, 1/WEEK
     Route: 042
     Dates: start: 20111117
  6. RISPERIDONE [Concomitant]
     Active Substance: RISPERIDONE
     Indication: Behaviour disorder
     Dosage: UNK
     Route: 048
     Dates: end: 20110403
  7. RISPERIDONE [Concomitant]
     Active Substance: RISPERIDONE
     Dosage: UNK
     Route: 048
     Dates: start: 20110404
  8. ACETAMINOPHEN [Concomitant]
     Active Substance: ACETAMINOPHEN
     Indication: Premedication
     Dosage: UNK
     Route: 048
     Dates: start: 20070405, end: 20070405
  9. ACETAMINOPHEN [Concomitant]
     Active Substance: ACETAMINOPHEN
     Dosage: UNK
     Route: 048
     Dates: start: 20070412, end: 20070412
  10. ACETAMINOPHEN [Concomitant]
     Active Substance: ACETAMINOPHEN
     Dosage: UNK
     Route: 048
     Dates: start: 20070419, end: 20070419
  11. ACETAMINOPHEN [Concomitant]
     Active Substance: ACETAMINOPHEN
     Dosage: UNK
     Route: 048
     Dates: start: 20070426, end: 20070426
  12. ACETAMINOPHEN [Concomitant]
     Active Substance: ACETAMINOPHEN
     Dosage: UNK
     Route: 048
     Dates: start: 20070503, end: 20070503
  13. ACETAMINOPHEN [Concomitant]
     Active Substance: ACETAMINOPHEN
     Dosage: UNK
     Route: 048
     Dates: start: 20070510, end: 20070510
  14. ACETAMINOPHEN [Concomitant]
     Active Substance: ACETAMINOPHEN
     Dosage: UNK
     Route: 048
     Dates: start: 20070517, end: 20070517
  15. ACETAMINOPHEN [Concomitant]
     Active Substance: ACETAMINOPHEN
     Dosage: UNK
     Route: 048
     Dates: start: 20070524, end: 20070620
  16. ACETAMINOPHEN [Concomitant]
     Active Substance: ACETAMINOPHEN
     Dosage: UNK
     Route: 050
  17. ACETAMINOPHEN [Concomitant]
     Active Substance: ACETAMINOPHEN
     Dosage: UNK
     Route: 048
     Dates: start: 20110714, end: 20110714
  18. ACETAMINOPHEN [Concomitant]
     Active Substance: ACETAMINOPHEN
     Dosage: UNK
     Route: 048
     Dates: start: 20110916
  19. PHENYTOIN [Concomitant]
     Active Substance: PHENYTOIN
     Indication: Seizure
     Dosage: UNK
     Route: 050
  20. DOMPERIDONE [Concomitant]
     Active Substance: DOMPERIDONE
     Dosage: UNK
     Route: 065
     Dates: end: 2014
  21. CHLORPHENIRAMINE MALEATE [Concomitant]
     Active Substance: CHLORPHENIRAMINE MALEATE
     Indication: Premedication
     Dosage: UNK
     Route: 048
     Dates: start: 20070405, end: 20070405
  22. CHLORPHENIRAMINE MALEATE [Concomitant]
     Active Substance: CHLORPHENIRAMINE MALEATE
     Dosage: UNK
     Route: 048
     Dates: start: 20070412, end: 20070412
  23. CHLORPHENIRAMINE MALEATE [Concomitant]
     Active Substance: CHLORPHENIRAMINE MALEATE
     Dosage: UNK
     Route: 048
     Dates: start: 20070419, end: 20070419
  24. CHLORPHENIRAMINE MALEATE [Concomitant]
     Active Substance: CHLORPHENIRAMINE MALEATE
     Dosage: UNK
     Route: 048
     Dates: start: 20070426, end: 20070426
  25. CHLORPHENIRAMINE MALEATE [Concomitant]
     Active Substance: CHLORPHENIRAMINE MALEATE
     Dosage: UNK
     Route: 048
     Dates: start: 20070503, end: 20070503
  26. CHLORPHENIRAMINE MALEATE [Concomitant]
     Active Substance: CHLORPHENIRAMINE MALEATE
     Dosage: UNK
     Route: 048
     Dates: start: 20070510, end: 20070510
  27. CHLORPHENIRAMINE MALEATE [Concomitant]
     Active Substance: CHLORPHENIRAMINE MALEATE
     Dosage: UNK
     Route: 048
     Dates: start: 20070517, end: 20070517
  28. CHLORPHENIRAMINE MALEATE [Concomitant]
     Active Substance: CHLORPHENIRAMINE MALEATE
     Dosage: UNK
     Route: 048
     Dates: start: 20070524
  29. HYDROCORTISONE [Concomitant]
     Active Substance: HYDROCORTISONE
     Indication: Prophylaxis
     Dosage: UNK
     Route: 042
     Dates: start: 20070426, end: 20070426
  30. DEXAMETHASONE [Concomitant]
     Active Substance: DEXAMETHASONE
     Indication: Prophylaxis
     Dosage: UNK
     Route: 042
     Dates: start: 20070503, end: 20070503
  31. AMOXICILLIN [Concomitant]
     Active Substance: AMOXICILLIN
     Indication: Ear infection
     Dosage: UNK
     Route: 048
     Dates: start: 20110210, end: 20110622
  32. CHLORPHENIRAMINE [Concomitant]
     Active Substance: CHLORPHENIRAMINE
     Indication: Premedication
     Dosage: UNK
     Route: 048
     Dates: start: 20110316, end: 20110316
  33. CHLORPHENIRAMINE [Concomitant]
     Active Substance: CHLORPHENIRAMINE
     Dosage: UNK
     Route: 048
     Dates: start: 20110325, end: 20110325
  34. IBUPROFEN [Concomitant]
     Active Substance: IBUPROFEN
     Indication: Pyrexia
     Dosage: UNK
     Route: 048
     Dates: start: 20110713
  35. VANCOMYCIN [Concomitant]
     Active Substance: VANCOMYCIN
     Indication: Vascular device infection
     Dosage: UNK
     Route: 042
     Dates: start: 20110716, end: 20110716
  36. VANCOMYCIN [Concomitant]
     Active Substance: VANCOMYCIN
     Dosage: UNK
     Route: 042
     Dates: start: 20110717, end: 20110717
  37. TEICOPLANIN [Concomitant]
     Active Substance: TEICOPLANIN
     Indication: Device related infection
     Dosage: UNK
     Route: 042
     Dates: start: 20110718, end: 20110719
  38. TEICOPLANIN [Concomitant]
     Active Substance: TEICOPLANIN
     Dosage: UNK
     Route: 042
     Dates: start: 20110720, end: 20110728
  39. MORPHINE SULFATE [Concomitant]
     Active Substance: MORPHINE SULFATE
     Indication: Pain
     Dosage: UNK
     Route: 048
     Dates: start: 20130117
  40. MORPHINE SULFATE [Concomitant]
     Active Substance: MORPHINE SULFATE
     Dosage: UNK
     Route: 048
     Dates: start: 20130207, end: 201409
  41. MELATONIN [Concomitant]
     Active Substance: MELATONIN
     Indication: Sleep disorder
     Dosage: UNK
     Route: 048
     Dates: start: 20130207, end: 201305
  42. DOCUSATE SODIUM [Concomitant]
     Active Substance: DOCUSATE SODIUM
     Indication: Constipation
     Dosage: UNK
     Route: 048
     Dates: start: 20130208
  43. LACTULOSE [Concomitant]
     Active Substance: LACTULOSE
     Indication: Constipation
     Dosage: UNK
     Route: 050
     Dates: start: 20130208
  44. GAVISCON [Concomitant]
     Active Substance: ALUMINUM HYDROXIDE\MAGNESIUM CARBONATE
     Indication: Reflux gastritis
     Dosage: UNK
     Route: 048
     Dates: start: 20140722, end: 201409
  45. VITAMIN D [Concomitant]
     Active Substance: VITAMIN D NOS
     Indication: Vitamin supplementation
     Dosage: UNK
     Route: 065
     Dates: start: 20140722, end: 20141022
  46. SCOPOLAMINE HYDROBROMIDE [Concomitant]
     Active Substance: SCOPOLAMINE HYDROBROMIDE
     Indication: Gastrin secretion disorder
     Dosage: UNK
     Route: 062
     Dates: start: 20140801
  47. PROSHIELD [Concomitant]
     Indication: Thermal burn
     Dosage: UNK
     Route: 061
     Dates: start: 201408, end: 20141105
  48. RANITIDINE [Concomitant]
     Active Substance: RANITIDINE
     Indication: Reflux gastritis
     Dosage: UNK
     Route: 050
     Dates: start: 201409
  49. DIORALYTE [Concomitant]
     Active Substance: CITRIC ACID MONOHYDRATE\DEXTROSE\POTASSIUM CATION\SODIUM CHLORIDE
     Indication: Prophylaxis against dehydration
     Dosage: UNK
     Route: 050
     Dates: start: 20140903
  50. MORPHINE [Concomitant]
     Active Substance: MORPHINE
     Indication: Pain
     Dosage: UNK
     Route: 048
     Dates: start: 20140909, end: 201410
  51. MIDAZOLAM [Concomitant]
     Active Substance: MIDAZOLAM
     Indication: Feeling abnormal
  52. KETAMINE [Concomitant]
     Active Substance: KETAMINE
     Indication: Pain
     Dosage: UNK
     Route: 048
     Dates: start: 20140922, end: 20140930
  53. SENNA [Concomitant]
     Active Substance: SENNA LEAF\SENNOSIDES\SENNOSIDES A AND B
     Indication: Constipation
     Dosage: UNK
     Route: 050
     Dates: start: 20140928, end: 20141003
  54. MOVICOL [Concomitant]
     Active Substance: POLYETHYLENE GLYCOL 3350\POTASSIUM CHLORIDE\SODIUM BICARBONATE\SODIUM CHLORIDE
     Indication: Constipation
     Dosage: UNK
     Route: 050
     Dates: start: 20141003
  55. CIPROFLOXACIN [Concomitant]
     Active Substance: CIPROFLOXACIN
     Indication: Antibiotic prophylaxis
     Dosage: UNK
     Route: 050
     Dates: start: 20141126, end: 20141202
  56. LINEZOLID [Concomitant]
     Active Substance: LINEZOLID
     Indication: Antibiotic prophylaxis
     Dosage: UNK
     Route: 050
     Dates: start: 20141126, end: 20141202
  57. AMOXICILLIN\CLAVULANATE POTASSIUM [Concomitant]
     Active Substance: AMOXICILLIN\CLAVULANATE POTASSIUM
     Indication: Lower respiratory tract infection
     Dosage: UNK
     Route: 050
     Dates: start: 201505, end: 20150518
  58. GLYCOPYRRONIUM [Concomitant]
     Active Substance: GLYCOPYRRONIUM
     Indication: Secretion discharge
     Dosage: UNK
     Route: 065
     Dates: start: 20151016
  59. AZITHROMYCIN [Concomitant]
     Active Substance: AZITHROMYCIN
     Dosage: UNK
     Route: 065
     Dates: start: 20151019, end: 20151021
  60. GABAPENTIN [Concomitant]
     Active Substance: GABAPENTIN
     Indication: Dystonia
     Dosage: UNK
     Route: 065
     Dates: start: 20151030

REACTIONS (11)
  - Respiratory distress [Recovered/Resolved with Sequelae]
  - Bacteraemia [Recovered/Resolved]
  - Gastrointestinal hypomotility [Recovered/Resolved]
  - Mucopolysaccharidosis II [Recovering/Resolving]
  - Dyskinesia [Recovering/Resolving]
  - Radiation injury [Recovered/Resolved]
  - Abdominal distension [Recovered/Resolved]
  - Malabsorption [Recovered/Resolved]
  - Gastrointestinal disorder [Recovered/Resolved]
  - Agitation [Recovering/Resolving]
  - Body temperature increased [Recovered/Resolved]

NARRATIVE: CASE EVENT DATE: 20110211
